FAERS Safety Report 9843491 (Version 1)
Quarter: 2013Q4

REPORT INFORMATION
  Report Type: Spontaneous
  Country: US (occurrence: None)
  Receive Date: 20131223
  Receipt Date: 20131223
  Transmission Date: 20140711
  Serious: Yes (Other)
  Sender: FDA-Public Use
  Company Number: 219339LEO

PATIENT
  Age: 63 Year
  Sex: Male

DRUGS (2)
  1. PICATO (0.015%, GEL) [Suspect]
     Indication: ACTINIC KERATOSIS
     Route: 061
     Dates: start: 20121013, end: 20121015
  2. LIPITOR [Concomitant]

REACTIONS (3)
  - Erythema [None]
  - Blister [None]
  - Application site pain [None]
